FAERS Safety Report 16383008 (Version 3)
Quarter: 2024Q3

REPORT INFORMATION
  Report Type: Spontaneous
  Country: US (occurrence: US)
  Receive Date: 20190603
  Receipt Date: 20240912
  Transmission Date: 20241016
  Serious: Yes (Other)
  Sender: PFIZER
  Company Number: US-PFIZER INC-2019232687

PATIENT
  Age: 11 Month
  Sex: Male

DRUGS (2)
  1. SOMATROPIN [Suspect]
     Active Substance: SOMATROPIN
     Indication: Short stature
     Dosage: 0.6 MG, 1X/DAY (NIGHTLY)
     Dates: start: 20170412
  2. SOMATROPIN [Suspect]
     Active Substance: SOMATROPIN
     Indication: Prader-Willi syndrome
     Dosage: 0.6 MG/DAY 7 DAYS/WEEK

REACTIONS (2)
  - Strabismus [Not Recovered/Not Resolved]
  - Adenoidectomy [Unknown]

NARRATIVE: CASE EVENT DATE: 20171101
